FAERS Safety Report 5645066-6 (Version None)
Quarter: 2008Q1

REPORT INFORMATION
  Report Type: 
  Country: None (occurrence: None)
  Receive Date: 20080229
  Receipt Date: 20080220
  Transmission Date: 20080703
  Serious: Yes (Hospitalization, Other)
  Sender: FDA-Public Use
  Company Number: JP-JNJFOC-20070202577

PATIENT
  Sex: Male
  Weight: 68 kg

DRUGS (20)
  1. INFLIXIMAB [Suspect]
     Route: 042
  2. INFLIXIMAB [Suspect]
     Route: 042
  3. INFLIXIMAB [Suspect]
     Route: 042
  4. INFLIXIMAB [Suspect]
     Route: 042
  5. INFLIXIMAB [Suspect]
     Route: 042
  6. INFLIXIMAB [Suspect]
     Route: 042
  7. INFLIXIMAB [Suspect]
     Route: 042
  8. INFLIXIMAB [Suspect]
     Route: 042
  9. INFLIXIMAB [Suspect]
     Indication: RHEUMATOID ARTHRITIS
     Route: 042
  10. RHEUMATREX [Suspect]
     Route: 048
  11. RHEUMATREX [Suspect]
     Indication: RHEUMATOID ARTHRITIS
     Route: 048
  12. FOLIAMIN [Concomitant]
     Indication: FOLATE DEFICIENCY
     Dosage: START DATE: PRIOR TO 14-DEC-2005
     Route: 048
  13. PREDONINE [Concomitant]
     Indication: RHEUMATOID ARTHRITIS
     Dosage: START DATE: PRIOR TO 14-DEC-2005
     Route: 048
  14. PARIET [Concomitant]
     Indication: PROPHYLAXIS
     Dosage: START DATE: PRIOR TO 14-DEC-2005
     Route: 048
  15. VOLTAREN [Concomitant]
     Indication: RHEUMATOID ARTHRITIS
     Dosage: START DATE: PRIOR TO 14-DEC-2005
     Route: 048
  16. CYTOTEC [Concomitant]
     Indication: GASTRITIS
     Dosage: DOSE: 200RG
     Route: 048
  17. ISCOTIN [Concomitant]
     Indication: PROPHYLAXIS
     Route: 048
  18. YODEL S [Concomitant]
     Indication: CONSTIPATION
     Dosage: EACH DOSE
     Route: 048
  19. FLORID [Concomitant]
  20. GASTER D [Concomitant]
     Indication: GASTRITIS

REACTIONS (2)
  - OSTEOMYELITIS [None]
  - SMALL CELL LUNG CANCER STAGE UNSPECIFIED [None]
